FAERS Safety Report 5691935-0 (Version None)
Quarter: 2008Q2

REPORT INFORMATION
  Report Type: 
  Country: None (occurrence: None)
  Receive Date: 20080328
  Receipt Date: 20071022
  Transmission Date: 20081010
  Serious: Yes (Life-Threatening, Hospitalization)
  Sender: FDA-Public Use
  Company Number: 42066

PATIENT
  Age: 6 Year
  Sex: Female
  Weight: 20 kg

DRUGS (2)
  1. ADRIAMYCIN PFS [Suspect]
     Indication: BONE SARCOMA
     Dosage: 37.5 MG/M2 (360MG TOTAL)IV
     Route: 042
     Dates: start: 20060518, end: 20061213
  2. CISPLATIN [Suspect]
     Dosage: 384MG TOTAL
     Dates: start: 20060518, end: 20061004

REACTIONS (1)
  - CARDIOMYOPATHY [None]
